FAERS Safety Report 19031947 (Version 1)
Quarter: 2021Q1

REPORT INFORMATION
  Report Type: Spontaneous
  Country: JP (occurrence: JP)
  Receive Date: 20210319
  Receipt Date: 20210319
  Transmission Date: 20210420
  Serious: Yes (Hospitalization)
  Sender: FDA-Public Use
  Company Number: JP-ASTRAZENECA-2021A146460

PATIENT
  Age: 69 Year
  Sex: Male
  Weight: 62 kg

DRUGS (10)
  1. PHENOBAL [Concomitant]
     Active Substance: PHENOBARBITAL
     Dosage: DOSE UNKNOWN
     Route: 048
  2. CRESTOR [Suspect]
     Active Substance: ROSUVASTATIN CALCIUM
     Indication: DYSLIPIDAEMIA
     Route: 048
     Dates: start: 20200521, end: 20200623
  3. GLACTIV [Concomitant]
     Active Substance: SITAGLIPTIN
     Dosage: DOSE UNKNOWN
     Route: 048
     Dates: end: 20200701
  4. ALIMTA [Suspect]
     Active Substance: PEMETREXED DISODIUM
     Indication: LUNG ADENOCARCINOMA
     Route: 065
     Dates: start: 20200610
  5. L?CARBOCISTEINE [Suspect]
     Active Substance: CARBOCYSTEINE
     Indication: BRONCHITIS CHRONIC
     Route: 048
     Dates: start: 20200428, end: 20200623
  6. ULTIBRO [Concomitant]
     Active Substance: GLYCOPYRRONIUM\INDACATEROL
     Dosage: DOSE UNKNOWN
     Route: 055
     Dates: end: 20200701
  7. PANVITAN [Concomitant]
     Active Substance: VITAMINS
     Dosage: DOSE UNKNOWN
     Route: 048
  8. ALEVIATIN [Concomitant]
     Active Substance: PHENYTOIN SODIUM
     Dosage: DOSE UNKNOWN
     Route: 048
  9. CARBOPLATIN. [Suspect]
     Active Substance: CARBOPLATIN
     Indication: LUNG ADENOCARCINOMA
     Route: 065
     Dates: start: 20200610
  10. KEYTRUDA [Suspect]
     Active Substance: PEMBROLIZUMAB
     Indication: LUNG ADENOCARCINOMA
     Route: 065
     Dates: start: 20200610, end: 20200610

REACTIONS (1)
  - Stevens-Johnson syndrome [Recovering/Resolving]

NARRATIVE: CASE EVENT DATE: 20200623
